FAERS Safety Report 23403712 (Version 3)
Quarter: 2024Q2

REPORT INFORMATION
  Report Type: Spontaneous
  Country: DE (occurrence: DE)
  Receive Date: 20240116
  Receipt Date: 20240516
  Transmission Date: 20240716
  Serious: Yes (Death, Life-Threatening, Hospitalization, Other)
  Sender: FDA-Public Use
  Company Number: None

PATIENT
  Age: 30 Year
  Sex: Female

DRUGS (9)
  1. PREDNISOLONE [Suspect]
     Active Substance: PREDNISOLONE
     Indication: Colitis ulcerative
     Dosage: 70 MILLIGRAM/DAY
     Route: 065
     Dates: start: 202001, end: 2020
  2. PREDNISOLONE [Suspect]
     Active Substance: PREDNISOLONE
     Dosage: 2.5 MILLIGRAM,/DAY AT 6 WEEKS
     Route: 065
     Dates: start: 202001, end: 2020
  3. DEXAMETHASONE [Suspect]
     Active Substance: DEXAMETHASONE
     Indication: Haemophagocytic lymphohistiocytosis
     Dosage: 8 MILLIGRAM, TID (3 ? 8 MG)
     Route: 065
     Dates: start: 2020, end: 2020
  4. AZATHIOPRINE [Suspect]
     Active Substance: AZATHIOPRINE
     Indication: Colitis ulcerative
     Dosage: UNK
     Route: 065
     Dates: start: 202001, end: 2020
  5. METAMIZOLE [Concomitant]
     Active Substance: METAMIZOLE
     Indication: Vomiting
     Dosage: AT LEAST A 5 ML AND A 10 ML BOTTLE WHERE USED ADDING UP TO 35 G OF METAMIZOLE
     Route: 065
     Dates: start: 2020
  6. METAMIZOLE [Concomitant]
     Active Substance: METAMIZOLE
     Indication: Diarrhoea
  7. METAMIZOLE [Concomitant]
     Active Substance: METAMIZOLE
     Indication: Pyrexia
  8. PIPERACILLIN SODIUM\TAZOBACTAM SODIUM [Concomitant]
     Active Substance: PIPERACILLIN SODIUM\TAZOBACTAM SODIUM
     Indication: Neutropenic sepsis
     Dosage: UNK
     Route: 065
     Dates: start: 2020
  9. PIPERACILLIN SODIUM\TAZOBACTAM SODIUM [Concomitant]
     Active Substance: PIPERACILLIN SODIUM\TAZOBACTAM SODIUM
     Indication: Sepsis

REACTIONS (14)
  - Acute kidney injury [Fatal]
  - Immune reconstitution inflammatory syndrome [Fatal]
  - Pulmonary haemorrhage [Fatal]
  - Colitis [Fatal]
  - Hepatic function abnormal [Fatal]
  - Skin necrosis [Fatal]
  - Multiple organ dysfunction syndrome [Fatal]
  - Pneumothorax [Recovered/Resolved]
  - Haemophagocytic lymphohistiocytosis [Unknown]
  - Fungal infection [Fatal]
  - Pneumonia fungal [Fatal]
  - Aspergillus infection [Fatal]
  - Systemic mycosis [Fatal]
  - Abdominal abscess [Unknown]

NARRATIVE: CASE EVENT DATE: 20200101
